FAERS Safety Report 23046571 (Version 1)
Quarter: 2023Q4

REPORT INFORMATION
  Report Type: Spontaneous
  Country: PT (occurrence: PT)
  Receive Date: 20231009
  Receipt Date: 20231009
  Transmission Date: 20240110
  Serious: Yes (Hospitalization, Other)
  Sender: FDA-Public Use
  Company Number: PT-009507513-2309PRT006680

PATIENT
  Age: 41 Year
  Sex: Female

DRUGS (7)
  1. CARBOPLATIN [Suspect]
     Active Substance: CARBOPLATIN
     Indication: Triple negative breast cancer
     Dosage: FREQ: WEEKLY
  2. PACLITAXEL [Suspect]
     Active Substance: PACLITAXEL
     Indication: Triple negative breast cancer
     Dosage: FREQ: WEEKLY
  3. PEMBROLIZUMAB [Suspect]
     Active Substance: PEMBROLIZUMAB
     Indication: Triple negative breast cancer
     Dosage: UNK, EVERY 3 WEEKS; ADJUVANT
     Dates: start: 2023
  4. PEMBROLIZUMAB [Suspect]
     Active Substance: PEMBROLIZUMAB
     Dosage: UNK, EVERY 3 WEEKS; NEOADJUVANT
     Dates: end: 2023
  5. CYCLOPHOSPHAMIDE [Suspect]
     Active Substance: CYCLOPHOSPHAMIDE
     Indication: Triple negative breast cancer
     Dosage: UNK
     Dates: start: 2023, end: 2023
  6. EPIRUBICIN [Suspect]
     Active Substance: EPIRUBICIN
     Indication: Triple negative breast cancer
     Dosage: UNK
     Dates: start: 2023, end: 2023
  7. BIOFLAVONOIDS NOS [Concomitant]
     Indication: Product used for unknown indication
     Dosage: UNK

REACTIONS (14)
  - Breast cancer recurrent [None]
  - Neutropenia [Recovering/Resolving]
  - Central venous catheterisation [None]
  - Nodular vasculitis [None]
  - Device related thrombosis [None]
  - Breast conserving surgery [None]
  - Pseudomonas infection [Recovering/Resolving]
  - Eczema [None]
  - Hordeolum [None]
  - COVID-19 [None]
  - Transaminases increased [None]
  - Peripheral venous disease [None]
  - Catheter site infection [Recovering/Resolving]
  - Asthenia [None]

NARRATIVE: CASE EVENT DATE: 20230101
